FAERS Safety Report 10349108 (Version 2)
Quarter: 2014Q3

REPORT INFORMATION
  Report Type: Other
  Country: IT (occurrence: IT)
  Receive Date: 20140730
  Receipt Date: 20140811
  Transmission Date: 20150326
  Serious: Yes (Other)
  Sender: FDA-Public Use
  Company Number: IT-SUN PHARMACEUTICAL INDUSTRIES LTD-2014SUN01707

PATIENT

DRUGS (6)
  1. AVASTIN [Suspect]
     Active Substance: BEVACIZUMAB
     Indication: COLON CANCER METASTATIC
     Dosage: 450 MG CYCLICAL
     Route: 042
     Dates: start: 20140324, end: 20140508
  2. 5-FLUOROURACILE [Suspect]
     Active Substance: FLUOROURACIL
     Dosage: 3600 MG CYCLICAL
     Route: 065
     Dates: start: 20140123, end: 20140616
  3. OLMEGAN [Concomitant]
     Indication: PRODUCT USED FOR UNKNOWN INDICATION
  4. LEVOFOLINIC ACID [Concomitant]
     Active Substance: LEVOLEUCOVORIN
     Indication: PRODUCT USED FOR UNKNOWN INDICATION
     Dosage: 300 MG
     Dates: start: 20140123, end: 20140616
  5. OXALIPLATIN. [Suspect]
     Active Substance: OXALIPLATIN
     Indication: COLON CANCER METASTATIC
     Dosage: 170 MG CYCLICAL
     Route: 042
     Dates: start: 20140123, end: 20140616
  6. 5-FLUOROURACILE [Suspect]
     Active Substance: FLUOROURACIL
     Indication: COLON CANCER METASTATIC
     Dosage: 600 MG CYCLICAL
     Route: 040
     Dates: start: 20140123, end: 20140616

REACTIONS (3)
  - Ejection fraction decreased [Recovering/Resolving]
  - Neurotoxicity [Not Recovered/Not Resolved]
  - Cough [Recovering/Resolving]

NARRATIVE: CASE EVENT DATE: 20140429
